FAERS Safety Report 6344248-8 (Version None)
Quarter: 2009Q3

REPORT INFORMATION
  Report Type: 
  Country: None (occurrence: None)
  Receive Date: 20090908
  Receipt Date: 20090903
  Transmission Date: 20100115
  Serious: Yes (Other)
  Sender: FDA-Public Use
  Company Number: US-WYE-H09227209

PATIENT
  Sex: Female

DRUGS (5)
  1. PREMPRO [Suspect]
     Indication: HORMONE REPLACEMENT THERAPY
  2. PROVERA [Suspect]
     Indication: HORMONE REPLACEMENT THERAPY
  3. PREMARIN [Suspect]
     Indication: HORMONE REPLACEMENT THERAPY
  4. PREMARIN [Suspect]
  5. CYCRIN [Suspect]
     Indication: HORMONE REPLACEMENT THERAPY

REACTIONS (1)
  - BREAST CANCER METASTATIC [None]
